FAERS Safety Report 7650139-2 (Version None)
Quarter: 2011Q3

REPORT INFORMATION
  Report Type: 
  Country: None (occurrence: None)
  Receive Date: 20110802
  Receipt Date: 20110729
  Transmission Date: 20111222
  Serious: Yes (Other)
  Sender: FDA-Public Use
  Company Number: DE-SANOFI-AVENTIS-2011SA048446

PATIENT
  Sex: Female
  Weight: 67 kg

DRUGS (6)
  1. METHIZOL [Concomitant]
     Route: 048
  2. PANTOPRAZOLE [Concomitant]
     Route: 048
  3. RAMIPRIL [Concomitant]
     Route: 048
  4. MULTAQ [Suspect]
     Indication: ATRIAL FIBRILLATION
     Route: 048
     Dates: start: 20110721, end: 20110727
  5. SIMVASTATIN [Concomitant]
     Route: 048
  6. OBSIDAN [Concomitant]
     Route: 048

REACTIONS (3)
  - ARRHYTHMIA [None]
  - ELECTROCARDIOGRAM R ON T PHENOMENON [None]
  - ATRIAL FIBRILLATION [None]
